FAERS Safety Report 8735310 (Version 2)
Quarter: 2013Q1

REPORT INFORMATION
  Report Type: Spontaneous
  Country: JP (occurrence: JP)
  Receive Date: 20120822
  Receipt Date: 20130220
  Transmission Date: 20140127
  Serious: Yes (Hospitalization)
  Sender: FDA-Public Use
  Company Number: JP-009507513-1207JPN007987

PATIENT
  Age: 79 Year
  Sex: Female

DRUGS (4)
  1. ALENDRONATE SODIUM [Suspect]
     Indication: RHEUMATOID ARTHRITIS
     Dosage: DAILY DOSAGE UNKNOWN
     Route: 048
  2. ALENDRONATE SODIUM [Suspect]
     Indication: OSTEOPOROSIS
  3. [THERAPY UNSPECIFIED] [Suspect]
     Indication: RHEUMATOID ARTHRITIS
     Dosage: DAILY DOSAGE UNKNOWN
     Route: 065
  4. [THERAPY UNSPECIFIED] [Suspect]
     Indication: OSTEOPOROSIS

REACTIONS (1)
  - Osteomyelitis [Recovered/Resolved]
